FAERS Safety Report 5300422-0 (Version None)
Quarter: 2007Q2

REPORT INFORMATION
  Report Type: 
  Country: None (occurrence: None)
  Receive Date: 20070418
  Receipt Date: 20070410
  Transmission Date: 20071010
  Serious: Yes (Death)
  Sender: FDA-Public Use
  Company Number: CH-NOVOPROD-262624

PATIENT
  Sex: Female
  Weight: 60 kg

DRUGS (3)
  1. ACTRAPID HM PENFILL [Suspect]
     Indication: OFF LABEL USE
     Dosage: 100 U, QD
     Route: 042
  2. INSULATARD HM PENFILL [Suspect]
     Indication: OFF LABEL USE
     Dosage: UNK U, QD
  3. VALIUM [Concomitant]
     Indication: DRUG USE FOR UNKNOWN INDICATION

REACTIONS (1)
  - COMPLETED SUICIDE [None]
